FAERS Safety Report 24757076 (Version 1)
Quarter: 2024Q4

REPORT INFORMATION
  Report Type: Spontaneous
  Country: US (occurrence: US)
  Receive Date: 20241220
  Receipt Date: 20241220
  Transmission Date: 20250115
  Serious: No
  Sender: TEVA
  Company Number: US-TEVA-VS-3143731

PATIENT
  Sex: Female

DRUGS (3)
  1. QNASL [Suspect]
     Active Substance: BECLOMETHASONE DIPROPIONATE
     Indication: Product used for unknown indication
     Route: 065
  2. QNASL [Suspect]
     Active Substance: BECLOMETHASONE DIPROPIONATE
  3. QNASL [Suspect]
     Active Substance: BECLOMETHASONE DIPROPIONATE

REACTIONS (2)
  - Nasal congestion [Unknown]
  - Drug delivery system issue [Unknown]
